FAERS Safety Report 7671938-7 (Version None)
Quarter: 2011Q3

REPORT INFORMATION
  Report Type: 
  Country: None (occurrence: None)
  Receive Date: 20110809
  Receipt Date: 20110802
  Transmission Date: 20111222
  Serious: Yes (Other)
  Sender: FDA-Public Use
  Company Number: US-GLAXOSMITHKLINE-A0939393A

PATIENT
  Age: 56 Year
  Sex: Female

DRUGS (13)
  1. VALIUM [Concomitant]
  2. ARISTOCORT [Concomitant]
  3. THEO-DUR [Concomitant]
  4. VENTOLIN HFA [Concomitant]
  5. SEREVENT [Suspect]
     Indication: DYSPNOEA
     Dosage: 1PUFF TWICE PER DAY
     Route: 055
  6. PROTONIX [Concomitant]
  7. SPIRONOLACTONE [Concomitant]
  8. DARVOCET [Concomitant]
  9. ESGIC [Concomitant]
  10. LASIX [Concomitant]
  11. SINGULAIR [Concomitant]
  12. ADVAIR DISKUS 100/50 [Suspect]
     Indication: CHRONIC OBSTRUCTIVE PULMONARY DISEASE
     Dosage: 1PUFF TWICE PER DAY
     Route: 055
  13. ROBAXIN [Concomitant]

REACTIONS (3)
  - PNEUMONIA [None]
  - VISUAL IMPAIRMENT [None]
  - VITREOUS FLOATERS [None]
